FAERS Safety Report 18066731 (Version 3)
Quarter: 2022Q1

REPORT INFORMATION
  Report Type: Spontaneous
  Country: US (occurrence: US)
  Receive Date: 20200724
  Receipt Date: 20220331
  Transmission Date: 20220423
  Serious: No
  Sender: FDA-Public Use
  Company Number: US-PFIZER INC-2020281149

PATIENT
  Age: 78 Year
  Sex: Female

DRUGS (1)
  1. BOSULIF [Suspect]
     Active Substance: BOSUTINIB MONOHYDRATE
     Dosage: 500 MG

REACTIONS (1)
  - Malaise [Not Recovered/Not Resolved]
